FAERS Safety Report 9636182 (Version 1)
Quarter: 2013Q4

REPORT INFORMATION
  Report Type: Report from Study
  Country: US (occurrence: US)
  Receive Date: 20131021
  Receipt Date: 20131021
  Transmission Date: 20140711
  Serious: Yes (Other)
  Sender: FDA-Public Use
  Company Number: US-US-EMD SERONO, INC.-7244079

PATIENT
  Sex: Female

DRUGS (1)
  1. REBIF [Suspect]
     Indication: MULTIPLE SCLEROSIS
     Route: 058
     Dates: start: 20080115

REACTIONS (3)
  - Neuroma [Recovered/Resolved]
  - Ligament disorder [Not Recovered/Not Resolved]
  - Limb discomfort [Not Recovered/Not Resolved]
